FAERS Safety Report 9816690 (Version 3)
Quarter: 2015Q1

REPORT INFORMATION
  Report Type: Spontaneous
  Country: US (occurrence: US)
  Receive Date: 20140114
  Receipt Date: 20150121
  Transmission Date: 20150721
  Serious: Yes (Hospitalization, Other)
  Sender: FDA-Public Use
  Company Number: US-009507513-1401USA003429

PATIENT
  Sex: Female

DRUGS (1)
  1. NUVARING [Suspect]
     Active Substance: ETHINYL ESTRADIOL\ETONOGESTREL
     Dosage: UNK
     Route: 067
     Dates: start: 20030204

REACTIONS (3)
  - Iron deficiency anaemia [Unknown]
  - Mesenteric vein thrombosis [Unknown]
  - Vaginal discharge [Unknown]

NARRATIVE: CASE EVENT DATE: 200302
